FAERS Safety Report 24035868 (Version 5)
Quarter: 2024Q3

REPORT INFORMATION
  Report Type: Spontaneous
  Country: AR (occurrence: AR)
  Receive Date: 20240701
  Receipt Date: 20240819
  Transmission Date: 20241016
  Serious: Yes (Other)
  Sender: NOVARTIS
  Company Number: AR-002147023-NVSC2024AR135336

PATIENT
  Sex: Female

DRUGS (3)
  1. TRAVATAN [Suspect]
     Active Substance: TRAVOPROST
     Indication: Glaucoma
     Dosage: 2.5 ML
     Route: 047
     Dates: start: 1980
  2. TRAVATAN [Suspect]
     Active Substance: TRAVOPROST
     Indication: Thermal burns of eye
  3. DIOCAM [Concomitant]
     Indication: Sleep disorder
     Dosage: UNK (HALF)
     Route: 065

REACTIONS (15)
  - Cataract [Unknown]
  - Pneumonitis [Unknown]
  - Breast cancer [Recovered/Resolved]
  - Blindness unilateral [Unknown]
  - Visual impairment [Unknown]
  - Influenza [Not Recovered/Not Resolved]
  - Dysgraphia [Unknown]
  - Eye disorder [Unknown]
  - Keratitis [Unknown]
  - Dry eye [Unknown]
  - Hypersensitivity [Not Recovered/Not Resolved]
  - Cough [Not Recovered/Not Resolved]
  - Rhinorrhoea [Not Recovered/Not Resolved]
  - Productive cough [Not Recovered/Not Resolved]
  - Expired product administered [Not Recovered/Not Resolved]

NARRATIVE: CASE EVENT DATE: 20170101
